FAERS Safety Report 9332617 (Version 1)
Quarter: 2013Q2

REPORT INFORMATION
  Report Type: Spontaneous
  Country: ES (occurrence: None)
  Receive Date: 20130603
  Receipt Date: 20130603
  Transmission Date: 20140414
  Serious: Yes (Hospitalization)
  Sender: FDA-Public Use
  Company Number: DSM-2013-00505

PATIENT
  Sex: 0

DRUGS (6)
  1. IXIARO [Suspect]
     Indication: HYPERTENSION
     Dosage: 2 IN 1 D
     Route: 048
     Dates: start: 20070607, end: 20091218
  2. LISINOPRIL [Suspect]
     Indication: HYPERTENSION
     Dosage: A FEW YEARS AGO?
     Route: 048
     Dates: end: 20091218
  3. ISODIUR [Suspect]
     Indication: HYPERTENSION
     Dosage: 20 MG   A FEW YEARS AGO
     Route: 048
     Dates: end: 20091218
  4. AMLODIPINE (AMLODIPINETABLET) (AMLODIPINE) [Concomitant]
  5. NOVORAPID FLEXPEN (INSULIN ASPART) (24 IU (INTERNATIOINAL UNIT), INJECTION) (INSULIN ASPART) [Concomitant]
  6. ZARATOR (ATORVASTATIN) (80 MILLIGRAM, TABLET) (ATORVASTATIN) [Concomitant]

REACTIONS (7)
  - Renal failure acute [None]
  - Drug interaction [None]
  - Nausea [None]
  - Vomiting [None]
  - Diarrhoea [None]
  - Metrorrhagia [None]
  - Haemodialysis [None]
